FAERS Safety Report 7560588-9 (Version None)
Quarter: 2011Q2

REPORT INFORMATION
  Report Type: 
  Country: None (occurrence: None)
  Receive Date: 20110621
  Receipt Date: 20100723
  Transmission Date: 20111010
  Serious: No
  Sender: FDA-Public Use
  Company Number: US-ASTRAZENECA-2010SE34835

PATIENT
  Age: 71 Year
  Sex: Female

DRUGS (2)
  1. ENTOCORT EC [Suspect]
     Indication: COLITIS MICROSCOPIC
     Route: 048
     Dates: start: 20100527
  2. ENTOCORT EC [Suspect]
     Route: 048

REACTIONS (3)
  - NAUSEA [None]
  - VULVAL OEDEMA [None]
  - ANORECTAL DISCOMFORT [None]
